FAERS Safety Report 21052780 (Version 2)
Quarter: 2022Q3

REPORT INFORMATION
  Report Type: Report from Study
  Country: JP (occurrence: JP)
  Receive Date: 20220707
  Receipt Date: 20220908
  Transmission Date: 20221026
  Serious: Yes (Hospitalization, Other)
  Sender: FDA-Public Use
  Company Number: JP-SA-2022SA257599

PATIENT
  Age: 6 Year
  Sex: Male
  Weight: 23.4 kg

DRUGS (8)
  1. ALEMTUZUMAB [Suspect]
     Active Substance: ALEMTUZUMAB
     Indication: Allogenic stem cell transplantation
     Dosage: UNK UNK, QD
     Route: 041
     Dates: start: 20210820, end: 20210824
  2. FLUDARA [Suspect]
     Active Substance: FLUDARABINE PHOSPHATE
     Indication: Allogenic stem cell transplantation
     Dosage: 25 MG, QD
     Route: 041
     Dates: start: 20210825, end: 20210830
  3. BUSULFEX [Suspect]
     Active Substance: BUSULFAN
     Indication: Allogenic stem cell transplantation
     Dosage: 45 MG, QD
     Route: 042
     Dates: start: 20210827, end: 20210830
  4. SOLU-MEDROL [Concomitant]
     Active Substance: METHYLPREDNISOLONE SODIUM SUCCINATE
     Indication: Prophylaxis
     Dosage: 24 MG, QD
     Route: 042
     Dates: start: 20210820, end: 20210824
  5. ATARAX-P [HYDROXYZINE HYDROCHLORIDE] [Concomitant]
     Indication: Prophylaxis
     Dosage: 12.5 MG, BID
     Route: 042
     Dates: start: 20210820, end: 20210824
  6. ACETAMINOPHEN [Concomitant]
     Active Substance: ACETAMINOPHEN
     Indication: Prophylaxis
     Dosage: 230 MG, TID
     Route: 042
     Dates: start: 20210820, end: 20210824
  7. MICAFUNGIN SODIUM [Concomitant]
     Active Substance: MICAFUNGIN SODIUM
     Indication: Infection prophylaxis
     Dosage: 25 MG, QD
     Route: 042
  8. SULFAMETHOXAZOLE\TRIMETHOPRIM [Concomitant]
     Active Substance: SULFAMETHOXAZOLE\TRIMETHOPRIM
     Indication: Infection prophylaxis
     Dosage: 0.5 G, BID
     Route: 048

REACTIONS (2)
  - Cystitis haemorrhagic [Recovering/Resolving]
  - Sepsis [Recovered/Resolved]

NARRATIVE: CASE EVENT DATE: 20210902
